FAERS Safety Report 10592043 (Version 1)
Quarter: 2014Q4

REPORT INFORMATION
  Report Type: Spontaneous
  Country: SE (occurrence: SE)
  Receive Date: 20141119
  Receipt Date: 20141119
  Transmission Date: 20150529
  Serious: Yes (Other)
  Sender: FDA-Public Use
  Company Number: SE-ROCHE-1490025

PATIENT
  Sex: Female

DRUGS (2)
  1. SENDOXAN [Suspect]
     Active Substance: CYCLOPHOSPHAMIDE
     Indication: VASCULITIS GASTROINTESTINAL
     Route: 065
     Dates: start: 20131106
  2. MABTHERA [Suspect]
     Active Substance: RITUXIMAB
     Indication: VASCULITIS GASTROINTESTINAL
     Route: 065
     Dates: start: 20110831, end: 2012

REACTIONS (4)
  - Immunodeficiency [Unknown]
  - Visual impairment [Unknown]
  - B-lymphocyte count decreased [Unknown]
  - Off label use [Unknown]
